FAERS Safety Report 5954006-1 (Version None)
Quarter: 2008Q4

REPORT INFORMATION
  Report Type: 
  Country: None (occurrence: None)
  Receive Date: 20081114
  Receipt Date: 20081104
  Transmission Date: 20090506
  Serious: Yes (Hospitalization)
  Sender: FDA-Public Use
  Company Number: US-AMGEN-US317350

PATIENT
  Sex: Female

DRUGS (7)
  1. ENBREL [Suspect]
     Indication: RHEUMATOID ARTHRITIS
     Route: 058
     Dates: start: 20000101, end: 20020320
  2. PREDNISONE TAB [Suspect]
     Route: 048
  3. REMICADE [Suspect]
     Dates: start: 20020606
  4. CELEBREX [Concomitant]
  5. OSCAL [Concomitant]
  6. ALBUTEROL [Concomitant]
  7. AMBIEN [Concomitant]
     Route: 048

REACTIONS (1)
  - RHEUMATOID ARTHRITIS [None]
